FAERS Safety Report 9735449 (Version 1)
Quarter: 2013Q4

REPORT INFORMATION
  Report Type: Spontaneous
  Country: GB (occurrence: GB)
  Receive Date: 20131206
  Receipt Date: 20131206
  Transmission Date: 20140711
  Serious: Yes (Life-Threatening)
  Sender: FDA-Public Use
  Company Number: GB-PFIZER INC-2013349177

PATIENT
  Age: 70 Year
  Sex: Female

DRUGS (19)
  1. PREGABALIN [Suspect]
     Indication: PAIN
     Dosage: 25 MG, UNK
     Route: 048
     Dates: start: 20131031, end: 20131101
  2. METOCLOPRAMIDE [Concomitant]
     Dosage: 10 MG, UNK
  3. ZOTON [Concomitant]
     Dosage: 30 MG, UNK
  4. BUMETANIDE [Concomitant]
     Dosage: 1 MG, UNK
  5. LEVOTHYROXINE [Concomitant]
     Dosage: 50 UG, UNK
  6. CARBOCISTEINE [Concomitant]
     Dosage: 375 MG, UNK
  7. PRAVASTATIN [Concomitant]
     Dosage: 20 MG, UNK
  8. RAMIPRIL [Concomitant]
     Dosage: 5 MG, UNK
  9. NEBIVOLOL [Concomitant]
     Dosage: 1.25 MG, UNK
  10. FERROUS SULPHATE [Concomitant]
     Dosage: 325 MG, UNK
  11. WARFARIN [Concomitant]
     Dosage: 1 MG, UNK
  12. ADCAL-D3 [Concomitant]
     Dosage: UNK
  13. GAVISCON [Concomitant]
     Dosage: UNK
  14. TIOTROPIUM [Concomitant]
     Dosage: UNK
  15. SERETIDE [Concomitant]
     Dosage: UNK
  16. SALBUTAMOL [Concomitant]
     Dosage: UNK
  17. PARACETAMOL [Concomitant]
     Dosage: UNK
  18. MST CONTINUS [Concomitant]
     Dosage: 70 MG, 2X/DAY
  19. OXYGEN [Concomitant]
     Indication: CHRONIC OBSTRUCTIVE PULMONARY DISEASE
     Dosage: UNK

REACTIONS (1)
  - Dyspnoea [Recovered/Resolved]
